APPROVED DRUG PRODUCT: TRIAMCINOLONE ACETONIDE
Active Ingredient: TRIAMCINOLONE ACETONIDE
Strength: 0.147MG/GM
Dosage Form/Route: SPRAY;TOPICAL
Application: A205782 | Product #001 | TE Code: AT
Applicant: PADAGIS ISRAEL PHARMACEUTICALS LTD
Approved: Apr 13, 2015 | RLD: No | RS: Yes | Type: RX